FAERS Safety Report 20082624 (Version 2)
Quarter: 2021Q4

REPORT INFORMATION
  Report Type: Report from Study
  Country: US (occurrence: None)
  Receive Date: 20211117
  Receipt Date: 20211124
  Transmission Date: 20220303
  Serious: Yes (Hospitalization)
  Sender: FDA-Public Use
  Company Number: US-Eisai Medical Research-EC-2021-103032

PATIENT
  Age: 58 Year
  Sex: Female

DRUGS (13)
  1. LENVIMA [Suspect]
     Active Substance: LENVATINIB
     Indication: Endometrial cancer
     Route: 048
     Dates: start: 20210821, end: 202110
  2. LENVIMA [Suspect]
     Active Substance: LENVATINIB
     Route: 048
     Dates: start: 2021
  3. KEYTRUDA [Concomitant]
     Active Substance: PEMBROLIZUMAB
  4. OXYCODONE [Concomitant]
     Active Substance: OXYCODONE
     Indication: Pain
     Dosage: DOSE AND FREQUENCY NOT PROVIDED
     Route: 048
  5. NITROFURANTOIN [Concomitant]
     Active Substance: NITROFURANTOIN
  6. LORAZEPAM [Concomitant]
     Active Substance: LORAZEPAM
  7. DIAZEPAM [Concomitant]
     Active Substance: DIAZEPAM
  8. METHENAMINE HIPPURATE [Concomitant]
     Active Substance: METHENAMINE HIPPURATE
  9. FENTANYL TRANSDERMAL SYSTEM [Concomitant]
     Active Substance: FENTANYL
  10. IMODIUM [Concomitant]
     Active Substance: LOPERAMIDE HYDROCHLORIDE
  11. ADVIL [Concomitant]
     Active Substance: IBUPROFEN
  12. PROCHLORPERAZINE [Concomitant]
     Active Substance: PROCHLORPERAZINE
  13. LOPERAMIDE -SIMETHICONE [Concomitant]

REACTIONS (3)
  - Vomiting [Unknown]
  - Nausea [Unknown]
  - Dehydration [Unknown]

NARRATIVE: CASE EVENT DATE: 20210927
